FAERS Safety Report 6636461-7 (Version None)
Quarter: 2010Q1

REPORT INFORMATION
  Report Type: 
  Country: None (occurrence: None)
  Receive Date: 20100226
  Receipt Date: 20090803
  Transmission Date: 20100710
  Serious: Yes (Hospitalization)
  Sender: FDA-Public Use
  Company Number: WAES 0908USA00568

PATIENT
  Age: 65 Year
  Sex: Male

DRUGS (4)
  1. PRINIVIL [Suspect]
     Dosage: PO
     Route: 048
  2. VALTREX [Suspect]
     Indication: HERPES ZOSTER
     Dosage: PO
     Route: 048
     Dates: start: 20090706
  3. VICODIN [Suspect]
     Indication: HERPES ZOSTER
     Dosage: PO
     Route: 048
     Dates: start: 20090706
  4. NEXIUM [Concomitant]

REACTIONS (1)
  - NAUSEA [None]
